FAERS Safety Report 20605071 (Version 2)
Quarter: 2022Q1

REPORT INFORMATION
  Report Type: Other
  Country: US (occurrence: None)
  Receive Date: 20220317
  Receipt Date: 20220321
  Transmission Date: 20220423
  Serious: Yes (Hospitalization)
  Sender: FDA-Public Use
  Company Number: US-ROCHE-3043176

PATIENT
  Sex: Male

DRUGS (6)
  1. OCREVUS [Suspect]
     Active Substance: OCRELIZUMAB
     Indication: Primary progressive multiple sclerosis
     Dosage: (PRESCRIBED AS 600 MG ONCE EVERY 6 MONTHS); DATE OF TREATMENT: 13/JUN/2018, 28/JUN/2018, 21/JUL/2021
     Route: 065
  2. MONTELUKAST SODIUM [Concomitant]
     Active Substance: MONTELUKAST SODIUM
  3. IBUPROFEN [Concomitant]
     Active Substance: IBUPROFEN
  4. FLONASE [Concomitant]
     Active Substance: FLUTICASONE PROPIONATE
  5. XANAX [Concomitant]
     Active Substance: ALPRAZOLAM
  6. FLEXERIL [Concomitant]
     Active Substance: CYCLOBENZAPRINE HYDROCHLORIDE

REACTIONS (7)
  - Pneumonia [Unknown]
  - Disinhibition [Unknown]
  - Postural tremor [Unknown]
  - Decreased vibratory sense [Unknown]
  - Gait disturbance [Unknown]
  - Vision blurred [Unknown]
  - Speech disorder [Unknown]
